FAERS Safety Report 5759393-5 (Version None)
Quarter: 2008Q2

REPORT INFORMATION
  Report Type: 
  Country: None (occurrence: None)
  Receive Date: 20080605
  Receipt Date: 20080523
  Transmission Date: 20081010
  Serious: Yes (Other)
  Sender: FDA-Public Use
  Company Number: RU-ELI_LILLY_AND_COMPANY-RU200805005929

PATIENT
  Age: 29 Year
  Sex: Male

DRUGS (1)
  1. ZYPREXA [Suspect]
     Dosage: 10 MG, UNK
     Route: 065
     Dates: start: 20040701

REACTIONS (4)
  - ARTHRALGIA [None]
  - LIMB INJURY [None]
  - OSTEONECROSIS [None]
  - WEIGHT INCREASED [None]
